FAERS Safety Report 9806575 (Version 1)
Quarter: 2014Q1

REPORT INFORMATION
  Report Type: Spontaneous
  Country: US (occurrence: US)
  Receive Date: 20140109
  Receipt Date: 20140109
  Transmission Date: 20141002
  Serious: Yes (Death)
  Sender: FDA-Public Use
  Company Number: US-PFIZER INC-2014006425

PATIENT
  Age: 57 Year
  Sex: Female

DRUGS (5)
  1. ATENOLOL [Suspect]
  2. COCAINE [Suspect]
  3. METFORMIN [Suspect]
  4. LISINOPRIL [Suspect]
  5. DULOXETINE [Suspect]

REACTIONS (1)
  - Death [Fatal]
